FAERS Safety Report 9383498 (Version 1)
Quarter: 2013Q3

REPORT INFORMATION
  Report Type: Spontaneous
  Country: US (occurrence: US)
  Receive Date: 20130704
  Receipt Date: 20130704
  Transmission Date: 20140515
  Serious: Yes (Hospitalization)
  Sender: FDA-Public Use
  Company Number: US-ASTRAZENECA-2013SE49048

PATIENT
  Age: 63 Year
  Sex: Male
  Weight: 54.4 kg

DRUGS (9)
  1. SYMBICORT [Suspect]
     Indication: CHRONIC OBSTRUCTIVE PULMONARY DISEASE
     Dosage: 160 MCG 2 PUFFS BID
     Route: 055
     Dates: start: 2008, end: 201306
  2. SYMBICORT [Suspect]
     Indication: CHRONIC OBSTRUCTIVE PULMONARY DISEASE
     Dosage: 80 MCG 2 PUFFS BID
     Route: 055
  3. LISINOPRIL [Suspect]
     Indication: HYPERTENSION
     Route: 048
     Dates: start: 2008
  4. SPIRIVA [Concomitant]
     Indication: CHRONIC OBSTRUCTIVE PULMONARY DISEASE
     Route: 055
     Dates: start: 2008
  5. CALCIUM WITH VITAMIN D [Concomitant]
     Indication: OSTEOPOROSIS
     Route: 048
     Dates: start: 2008
  6. ALBUTEROL [Concomitant]
     Indication: CHRONIC OBSTRUCTIVE PULMONARY DISEASE
     Dosage: UNKNOWN DOSE, BID
     Route: 055
     Dates: start: 2008
  7. ALBUTEROL [Concomitant]
     Indication: CHRONIC OBSTRUCTIVE PULMONARY DISEASE
     Dosage: BID, PRN
     Route: 055
     Dates: start: 2008
  8. ALBUTEROL [Concomitant]
     Indication: CHRONIC OBSTRUCTIVE PULMONARY DISEASE
     Dosage: FOR EMERGANCY TAKE UPTO 6 TIMES A DAY INSTEAD OF PRN
     Route: 055
  9. PROVENTIL 6.7 HFA OR VENTOLIN [Concomitant]
     Indication: INHALATION THERAPY
     Dosage: 90 MCG 2 PUFFS PRN
     Route: 055
     Dates: start: 2008

REACTIONS (3)
  - Dyspnoea [Unknown]
  - Pneumothorax [Unknown]
  - Pulmonary mass [Unknown]
